FAERS Safety Report 5225949-1 (Version None)
Quarter: 2007Q1

REPORT INFORMATION
  Report Type: 
  Country: None (occurrence: None)
  Receive Date: 20070129
  Receipt Date: 20070117
  Transmission Date: 20070707
  Serious: Yes (Other)
  Sender: FDA-Public Use
  Company Number: 152017ISR

PATIENT
  Age: 40 Year
  Sex: Male

DRUGS (1)
  1. LISINOPRIL [Suspect]
     Indication: BLOOD PRESSURE INCREASED
     Dosage: 10 MG
     Route: 048
     Dates: start: 20060801, end: 20061101

REACTIONS (2)
  - LICHENOID KERATOSIS [None]
  - ORAL DISCOMFORT [None]
